FAERS Safety Report 6679951-3 (Version None)
Quarter: 2010Q2

REPORT INFORMATION
  Report Type: 
  Country: None (occurrence: None)
  Receive Date: 20100413
  Receipt Date: 20100331
  Transmission Date: 20101027
  Serious: Yes (Hospitalization, Other)
  Sender: FDA-Public Use
  Company Number: CA-ELI_LILLY_AND_COMPANY-CA201001001892

PATIENT
  Age: 76 Year
  Sex: Female

DRUGS (12)
  1. FORTEO [Suspect]
     Indication: OSTEOPOROSIS
     Dosage: 20 UG, DAILY (1/D)
     Route: 058
     Dates: start: 20090921
  2. CARBOCAL [Concomitant]
  3. VITAMIN D [Concomitant]
     Dosage: 400 IU, UNK
  4. ASPIRIN [Concomitant]
     Dosage: 81 MG, UNK
  5. FUROSEMIDE [Concomitant]
     Dosage: 20 MG, UNK
  6. DILTIAZEM HCL [Concomitant]
     Dosage: 180 MG, UNK
  7. PLAVIX [Concomitant]
     Dosage: 25 MG, UNK
  8. DIOVAN [Concomitant]
     Dosage: 80 MG, UNK
  9. ZOCOR [Concomitant]
     Dosage: 20 MG, UNK
  10. VITAMIN C [Concomitant]
  11. RHINOCORT [Concomitant]
  12. GEN-NITRO [Concomitant]
     Dosage: UNK, AS NEEDED
     Route: 060

REACTIONS (4)
  - CHEST PAIN [None]
  - DYSPNOEA [None]
  - MYOCARDIAL INFARCTION [None]
  - STRESS CARDIOMYOPATHY [None]
